FAERS Safety Report 7041558-6 (Version None)
Quarter: 2010Q4

REPORT INFORMATION
  Report Type: 
  Country: None (occurrence: None)
  Receive Date: 20101013
  Receipt Date: 20100809
  Transmission Date: 20110411
  Serious: No
  Sender: FDA-Public Use
  Company Number: US-ASTRAZENECA-2010SE37216

PATIENT
  Sex: Female
  Weight: 61.2 kg

DRUGS (8)
  1. SYMBICORT [Suspect]
     Indication: ASTHMA
     Dosage: 160/4.5 MCG TWO PUFFS
     Route: 055
     Dates: start: 20100101
  2. SYMBICORT [Suspect]
     Indication: EMPHYSEMA
     Dosage: 160/4.5 MCG TWO PUFFS
     Route: 055
     Dates: start: 20100101
  3. SYMBICORT [Suspect]
     Dosage: 160/4.5 MCG
     Route: 055
     Dates: start: 20100101
  4. SYMBICORT [Suspect]
     Dosage: 160/4.5 MCG
     Route: 055
     Dates: start: 20100101
  5. PROAIR HFA [Concomitant]
  6. REFLUX MEDS [Concomitant]
  7. NASAL SPRAY [Concomitant]
  8. ALBUTEROL [Concomitant]
     Dosage: AS REQUIRED

REACTIONS (3)
  - ANXIETY [None]
  - DYSPNOEA [None]
  - INCORRECT DOSE ADMINISTERED [None]
